FAERS Safety Report 12562913 (Version 2)
Quarter: 2016Q3

REPORT INFORMATION
  Report Type: Spontaneous
  Country: US (occurrence: US)
  Receive Date: 20160715
  Receipt Date: 20160721
  Transmission Date: 20161109
  Serious: No
  Sender: FDA-Public Use
  Company Number: US-009507513-1607USA006145

PATIENT
  Age: 35 Year
  Sex: Female

DRUGS (1)
  1. RIBAVIRIN (WARRICK) [Suspect]
     Active Substance: RIBAVIRIN
     Dosage: UNK
     Dates: start: 20160224

REACTIONS (2)
  - Exposure via body fluid [Recovered/Resolved]
  - Blighted ovum [Unknown]

NARRATIVE: CASE EVENT DATE: 201607
